FAERS Safety Report 8943492 (Version 1)
Quarter: 2012Q4

REPORT INFORMATION
  Report Type: 
  Country: IT (occurrence: IT)
  Receive Date: 20121204
  Receipt Date: 20121204
  Transmission Date: 20130627
  Serious: Yes (Hospitalization)
  Sender: FDA-Public Use
  Company Number: PHHY2012IT109939

PATIENT
  Age: 49 Year
  Sex: Female

DRUGS (4)
  1. LAMOTRIGINE [Suspect]
     Route: 048
     Dates: start: 20121125, end: 20121125
  2. LORAZEPAM [Suspect]
     Dosage: 150 mg, UNK
     Route: 048
  3. SUPRADYN [Concomitant]
  4. DELORAZEPAM [Concomitant]

REACTIONS (7)
  - Lip oedema [Recovering/Resolving]
  - Hypotension [Recovering/Resolving]
  - Ecchymosis [Recovering/Resolving]
  - Feeling abnormal [Recovering/Resolving]
  - Fall [Recovering/Resolving]
  - Syncope [Recovering/Resolving]
  - Intentional overdose [Recovering/Resolving]
